FAERS Safety Report 24866650 (Version 1)
Quarter: 2025Q1

REPORT INFORMATION
  Report Type: Spontaneous
  Country: FR (occurrence: FR)
  Receive Date: 20250121
  Receipt Date: 20250121
  Transmission Date: 20250408
  Serious: Yes (Hospitalization)
  Sender: CHEPLAPHARM
  Company Number: None

PATIENT
  Age: 31 Year
  Sex: Male

DRUGS (5)
  1. OLANZAPINE [Suspect]
     Active Substance: OLANZAPINE
     Indication: Schizophrenia
     Dosage: 1/D/1 TABLET IN THE EVENING?DAILY DOSE: 1 DOSAGE FORM
     Route: 048
     Dates: start: 20241020
  2. CYAMEMAZINE [Suspect]
     Active Substance: CYAMEMAZINE
     Indication: Schizophrenia
     Dosage: 1/D/ 1 TAB AT BEDTIME?DAILY DOSE: 100 MILLIGRAM
     Route: 048
     Dates: start: 20241020
  3. CYAMEMAZINE [Suspect]
     Active Substance: CYAMEMAZINE
     Indication: Schizophrenia
     Dosage: 1/D/ 1 TABLET IN THE MORNING?DAILY DOSE: 25 MILLIGRAM
     Route: 048
     Dates: start: 20241020
  4. PAROXETINE HYDROCHLORIDE [Suspect]
     Active Substance: PAROXETINE HYDROCHLORIDE
     Indication: Schizophrenia
     Dosage: 1/D/1 TABLET IN THE MORNING?DAILY DOSE: 1 DOSAGE FORM
     Route: 048
     Dates: start: 20241020
  5. ZOPICLONE [Suspect]
     Active Substance: ZOPICLONE
     Indication: Insomnia
     Dosage: 1 TABLET AT BEDTIME?DAILY DOSE: 1 DOSAGE FORM
     Route: 048
     Dates: start: 20241020

REACTIONS (2)
  - Pulmonary embolism [Recovering/Resolving]
  - Hilar lymphadenopathy [Unknown]

NARRATIVE: CASE EVENT DATE: 20241127
